FAERS Safety Report 20018996 (Version 3)
Quarter: 2021Q4

REPORT INFORMATION
  Report Type: Spontaneous
  Country: GB (occurrence: GB)
  Receive Date: 20211101
  Receipt Date: 20211202
  Transmission Date: 20220303
  Serious: Yes (Hospitalization, Other)
  Sender: FDA-Public Use
  Company Number: GB-MYLANLABS-2021M1078667

PATIENT
  Sex: Male

DRUGS (4)
  1. CLOZARIL [Suspect]
     Active Substance: CLOZAPINE
     Indication: Schizophrenia
     Dosage: UNK
     Dates: start: 1990
  2. CLOZARIL [Suspect]
     Active Substance: CLOZAPINE
     Dosage: UNK
     Route: 048
     Dates: start: 20171202
  3. CLOZARIL [Suspect]
     Active Substance: CLOZAPINE
     Dosage: 200 MILLIGRAM
     Dates: start: 202012
  4. CLOZARIL [Suspect]
     Active Substance: CLOZAPINE
     Dosage: 400 MILLIGRAM

REACTIONS (9)
  - Hospitalisation [Unknown]
  - Intestinal obstruction [Recovered/Resolved]
  - Psychotic disorder [Recovered/Resolved]
  - Neuroleptic malignant syndrome [Recovering/Resolving]
  - Product dose omission issue [Unknown]
  - Constipation [Unknown]
  - Blood electrolytes abnormal [Unknown]
  - Blood creatine phosphokinase increased [Unknown]
  - White blood cell count increased [Unknown]

NARRATIVE: CASE EVENT DATE: 19900101
